FAERS Safety Report 19408525 (Version 2)
Quarter: 2021Q2

REPORT INFORMATION
  Report Type: Spontaneous
  Country: NL (occurrence: NL)
  Receive Date: 20210612
  Receipt Date: 20210625
  Transmission Date: 20210717
  Serious: Yes (Other)
  Sender: FDA-Public Use
  Company Number: NL-TEVA-2021-NL-1920923

PATIENT
  Age: 39 Year
  Sex: Female
  Weight: 58 kg

DRUGS (5)
  1. AJOVY [Suspect]
     Active Substance: FREMANEZUMAB-VFRM
     Indication: MIGRAINE
     Dosage: 1 X PER MONTH 1 INJECTION , UNIT DOSE : 1 DF
     Dates: start: 20191111, end: 20210511
  2. ELETRIPTAN TABLET FO 40MG / BRAND NAME NOT SPECIFIED [Concomitant]
     Dosage: 40 MG (MILLIGRAM) , THERAPY START DATE AND END DATE : ASKU
  3. FROVATRIPTAN TABLET 2,5MG / BRAND NAME NOT SPECIFIED [Concomitant]
     Dosage: 2,5MG ,THERAPY START DATE AND END DATE : ASKU
  4. FLUTICASON?PROPIONAAT NEUSSPRAY 50UG/DO / BRAND NAME NOT SPECIFIED [Concomitant]
     Active Substance: FLUTICASONE PROPIONATE
     Dosage: 50 MICROGRAMS/DOSE , THERAPY START DATE AND END DATE : ASKU
  5. LEVONORGESTREL IUD 52MG / MIRENA I.U.D. [Concomitant]
     Dosage: IUD , 52 MG , THERAPY START DATE AND END DATE : ASKU

REACTIONS (1)
  - Colitis ulcerative [Recovering/Resolving]

NARRATIVE: CASE EVENT DATE: 20210214
